FAERS Safety Report 23370244 (Version 2)
Quarter: 2024Q1

REPORT INFORMATION
  Report Type: Spontaneous
  Country: CN (occurrence: CN)
  Receive Date: 20240105
  Receipt Date: 20240110
  Transmission Date: 20240409
  Serious: Yes (Other)
  Sender: FDA-Public Use
  Company Number: CN-BAYER-2024A001066

PATIENT
  Age: 48 Year
  Sex: Female

DRUGS (1)
  1. MIRENA [Suspect]
     Active Substance: LEVONORGESTREL
     Indication: Endometrial thickening
     Dosage: 20?G/DAY
     Route: 015
     Dates: start: 2021, end: 202307

REACTIONS (16)
  - Liver injury [None]
  - Amenorrhoea [None]
  - Skin discolouration [Not Recovered/Not Resolved]
  - Melanosis [None]
  - Dry skin [None]
  - Ovarian cyst [None]
  - Cyst [None]
  - Alopecia [None]
  - Hypertrichosis [None]
  - Hair texture abnormal [None]
  - Peripheral swelling [None]
  - Affect lability [None]
  - Skin wrinkling [None]
  - Hirsutism [None]
  - Off label use of device [None]
  - Therapeutic product effective for unapproved indication [None]

NARRATIVE: CASE EVENT DATE: 20210101
